FAERS Safety Report 8014865-8 (Version None)
Quarter: 2011Q4

REPORT INFORMATION
  Report Type: 
  Country: None (occurrence: None)
  Receive Date: 20111229
  Receipt Date: 20111226
  Transmission Date: 20120403
  Serious: No
  Sender: FDA-Public Use
  Company Number: US-PFIZER INC-2011313474

PATIENT
  Sex: Male
  Weight: 96.145 kg

DRUGS (6)
  1. ADVIL PM [Suspect]
     Indication: NECK PAIN
  2. ADVIL PM [Suspect]
     Indication: MUSCULOSKELETAL CHEST PAIN
  3. ADVIL PM [Suspect]
     Indication: BACK PAIN
     Dosage: UNK, AS NEEDED
     Route: 048
     Dates: start: 20111224
  4. LISINOPRIL [Concomitant]
     Indication: HYPERTENSION
     Dosage: UNK
  5. ADVIL PM [Suspect]
     Indication: INSOMNIA
  6. VERAPAMIL [Concomitant]
     Indication: HYPERTENSION
     Dosage: UNK

REACTIONS (1)
  - SINUS HEADACHE [None]
